FAERS Safety Report 8809209 (Version 1)
Quarter: 2012Q4

REPORT INFORMATION
  Report Type: 
  Country: GB (occurrence: GB)
  Receive Date: 20120926
  Receipt Date: 20120926
  Transmission Date: 20130627
  Serious: Yes (Disabling)
  Sender: FDA-Public Use
  Company Number: PHHY2012GB082056

PATIENT
  Age: 59 Year
  Sex: Female

DRUGS (1)
  1. MIRTAZAPINE [Suspect]
     Indication: DEPRESSION

REACTIONS (6)
  - Lymphoedema [Unknown]
  - Weight increased [Unknown]
  - Oedema peripheral [Recovered/Resolved]
  - Muscle tightness [Unknown]
  - Pain in extremity [Unknown]
  - Joint swelling [Unknown]
